FAERS Safety Report 4835470-8 (Version None)
Quarter: 2005Q4

REPORT INFORMATION
  Report Type: 
  Country: None (occurrence: None)
  Receive Date: 20051122
  Receipt Date: 20051122
  Transmission Date: 20060501
  Serious: Yes (Other)
  Sender: FDA-Public Use
  Company Number: None

PATIENT
  Age: 55 Year
  Sex: Female
  Weight: 58.0604 kg

DRUGS (2)
  1. CYMBALTA [Suspect]
     Indication: DEPRESSION
     Dosage: 30MG   DAILY   PO    20MG  DAILY  PO
     Route: 048
     Dates: start: 20050330, end: 20051025
  2. CYMBALTA [Suspect]
     Indication: DEPRESSION
     Dosage: 30MG   DAILY   PO    20MG  DAILY  PO
     Route: 048
     Dates: start: 20051026, end: 20051121

REACTIONS (14)
  - BLOOD URINE PRESENT [None]
  - DEPRESSION [None]
  - DISORIENTATION [None]
  - DIZZINESS [None]
  - DRUG EFFECT DECREASED [None]
  - DRY THROAT [None]
  - FALL [None]
  - HEADACHE [None]
  - JOINT SPRAIN [None]
  - NAUSEA [None]
  - PHARYNGOLARYNGEAL PAIN [None]
  - PYREXIA [None]
  - SOMNOLENCE [None]
  - VISION BLURRED [None]
